FAERS Safety Report 23939151 (Version 1)
Quarter: 2024Q2

REPORT INFORMATION
  Report Type: 
  Country: AU (occurrence: AU)
  Receive Date: 20240604
  Receipt Date: 20240604
  Transmission Date: 20240715
  Serious: Yes (Other)
  Sender: FDA-Public Use
  Company Number: AU-CELLTRION INC.-2024AU012883

PATIENT

DRUGS (4)
  1. TRASTUZUMAB [Suspect]
     Active Substance: TRASTUZUMAB
     Indication: Product used for unknown indication
  2. FLUOROURACIL [Concomitant]
     Active Substance: FLUOROURACIL
  3. FLUOROURACIL\IRINOTECAN\LEUCOVORIN [Concomitant]
     Active Substance: FLUOROURACIL\IRINOTECAN\LEUCOVORIN
  4. CISPLATIN [Concomitant]
     Active Substance: CISPLATIN

REACTIONS (9)
  - Atrial thrombosis [Unknown]
  - Oesophageal adenocarcinoma [Unknown]
  - Radiation pneumonitis [Unknown]
  - Steroid diabetes [Unknown]
  - Respiratory failure [Unknown]
  - Ketonuria [Unknown]
  - Platypnoea-orthodeoxia syndrome [Unknown]
  - Respiratory alkalosis [Unknown]
  - Liver palpable [Unknown]
